FAERS Safety Report 6672430-9 (Version None)
Quarter: 2010Q2

REPORT INFORMATION
  Report Type: 
  Country: None (occurrence: None)
  Receive Date: 20100408
  Receipt Date: 20100329
  Transmission Date: 20101027
  Serious: Yes (Other)
  Sender: FDA-Public Use
  Company Number: NL-JNJFOC-20100109110

PATIENT
  Age: 65 Year
  Sex: Female

DRUGS (4)
  1. REMICADE [Suspect]
     Indication: PSORIASIS
     Route: 042
  2. REMICADE [Suspect]
     Indication: RHEUMATOID ARTHRITIS
     Route: 042
  3. METHOTREXATE [Concomitant]
     Indication: PSORIASIS
  4. METHOTREXATE [Concomitant]
     Indication: RHEUMATOID ARTHRITIS

REACTIONS (3)
  - ALOPECIA [None]
  - EYE IRRITATION [None]
  - HODGKIN'S DISEASE [None]
